FAERS Safety Report 22868902 (Version 5)
Quarter: 2023Q4

REPORT INFORMATION
  Report Type: Spontaneous
  Country: US (occurrence: US)
  Receive Date: 20230825
  Receipt Date: 20231228
  Transmission Date: 20240110
  Serious: No
  Sender: FDA-Public Use
  Company Number: US-PFIZER INC-PV202300002611

PATIENT
  Age: 88 Year
  Sex: Female

DRUGS (2)
  1. BOSULIF [Suspect]
     Active Substance: BOSUTINIB MONOHYDRATE
     Indication: Chronic myeloid leukaemia
     Dosage: 400 MG, DAILY (MUST ADMINISTER WITH A MEAL/ FOOD. TAKE W/ FOOD.)
     Route: 048
     Dates: start: 202210
  2. NITROSTAT [Concomitant]
     Active Substance: NITROGLYCERIN
     Indication: Chest pain
     Dosage: 0.4 MG, EVERY 5 TO 15 MINUTES AS NEEDED, DO NOT EXCEED 3 DOSES PER EPISODE

REACTIONS (1)
  - White blood cell count increased [Unknown]
